FAERS Safety Report 8500384-9 (Version None)
Quarter: 2012Q3

REPORT INFORMATION
  Report Type: 
  Country: None (occurrence: None)
  Receive Date: 20120710
  Receipt Date: 20120702
  Transmission Date: 20120928
  Serious: Yes (Hospitalization)
  Sender: FDA-Public Use
  Company Number: US-SPECTRUM PHARMACEUTICALS, INC.-12-Z-US-00103

PATIENT
  Sex: Male
  Weight: 48.526 kg

DRUGS (21)
  1. ZEVALIN [Suspect]
     Indication: MULTIPLE MYELOMA
     Dosage: 30.4 MCI, SINGLE
     Route: 042
     Dates: start: 20120606, end: 20120606
  2. FOLIC ACID [Concomitant]
     Indication: NEUROPATHY PERIPHERAL
     Dosage: 1 MG, UNK
     Route: 048
  3. ZEVALIN [Suspect]
     Dosage: 5.493 MCI, SINGLE
     Route: 042
     Dates: start: 20120530, end: 20120530
  4. DEXAMETHASONE [Concomitant]
     Indication: MULTIPLE MYELOMA
     Dosage: 20 MG, UNK
     Route: 042
     Dates: start: 20120619, end: 20120619
  5. METOPROLOL [Concomitant]
     Indication: HYPERTENSION
     Dosage: 50 MG, QD
     Route: 048
  6. K-PHOS PREMIX [Concomitant]
     Indication: PRODUCT USED FOR UNKNOWN INDICATION
     Dosage: 15 MMOL, SINGLE
     Route: 042
     Dates: start: 20120620, end: 20120620
  7. RITUXAN [Suspect]
     Indication: MULTIPLE MYELOMA
     Dosage: 220 MG, SINGLE
     Route: 065
     Dates: start: 20120606, end: 20120606
  8. LASIX [Concomitant]
     Indication: THERAPEUTIC PROCEDURE
     Dosage: 20 MG, UNK
     Route: 042
     Dates: start: 20120619
  9. MAGNESIUM SULFATE [Concomitant]
     Indication: THERAPEUTIC PROCEDURE
     Dosage: 1 G, UNK
     Route: 042
     Dates: start: 20120619
  10. SODIUM BICARBONATE [Concomitant]
     Indication: THERAPEUTIC PROCEDURE
     Dosage: 8.4 %, BID
     Route: 042
     Dates: start: 20120620, end: 20120620
  11. ASPIRIN [Concomitant]
     Indication: CARDIOVASCULAR DISORDER
     Dosage: 81 MG, QD
     Route: 048
  12. RITUXAN [Suspect]
     Dosage: 220 MG, SINGLE
     Route: 065
     Dates: start: 20120530, end: 20120530
  13. GABAPENTIN [Concomitant]
     Indication: NEUROPATHY PERIPHERAL
     Dosage: 600 MG, TID
     Route: 048
  14. NIFEDIPINE [Concomitant]
     Indication: HYPERTENSION
     Dosage: 30 MG, QD
     Route: 048
  15. CRESTOR [Concomitant]
     Indication: HYPERLIPIDAEMIA
     Dosage: 40 MG, QD
     Route: 048
  16. ONDANSETRON [Concomitant]
     Indication: NAUSEA
     Dosage: 16 MG, SINGLE
     Route: 065
     Dates: start: 20120619, end: 20120619
  17. PROTONIX [Concomitant]
     Indication: GASTRITIS
     Dosage: 40 MG, QD
     Route: 048
  18. MELPHALAN HYDROCHLORIDE [Concomitant]
     Indication: MULTIPLE MYELOMA
     Dosage: 300 MG, UNK
     Route: 065
     Dates: start: 20120619, end: 20120619
  19. ISOSORBIDE MONONITRATE [Concomitant]
     Indication: CARDIOVASCULAR DISORDER
     Dosage: 30 MG, QD
     Route: 048
  20. K-PHOS NEUTRAL [Concomitant]
     Indication: PRODUCT USED FOR UNKNOWN INDICATION
     Dosage: 500 MG, TID
     Route: 048
     Dates: start: 20120620
  21. LEVOTHYROXINE SODIUM [Concomitant]
     Indication: HYPOTHYROIDISM
     Dosage: 50 MG, QD
     Route: 048

REACTIONS (1)
  - MYOCLONUS [None]
